FAERS Safety Report 15247545 (Version 1)
Quarter: 2018Q3

REPORT INFORMATION
  Report Type: Spontaneous
  Country: JP (occurrence: JP)
  Receive Date: 20180807
  Receipt Date: 20180807
  Transmission Date: 20181010
  Serious: Yes (Hospitalization, Other)
  Sender: FDA-Public Use
  Company Number: JP-009507513-1804JPN000632J

PATIENT
  Age: 85 Year
  Sex: Male
  Weight: 53 kg

DRUGS (1)
  1. KEYTRUDA [Suspect]
     Active Substance: PEMBROLIZUMAB
     Indication: LUNG ADENOCARCINOMA STAGE I
     Dosage: 200 MG, Q3W
     Route: 041
     Dates: start: 20170926, end: 20180220

REACTIONS (2)
  - Organising pneumonia [Recovering/Resolving]
  - Pneumothorax [Recovering/Resolving]

NARRATIVE: CASE EVENT DATE: 20180313
